FAERS Safety Report 6296039-4 (Version None)
Quarter: 2009Q3

REPORT INFORMATION
  Report Type: 
  Country: None (occurrence: None)
  Receive Date: 20090804
  Receipt Date: 20090729
  Transmission Date: 20100115
  Serious: Yes (Life-Threatening, Other)
  Sender: FDA-Public Use
  Company Number: US-BAYER-200928659NA

PATIENT
  Age: 0 Hour

DRUGS (1)
  1. MIRENA [Suspect]
     Indication: DRUG USE FOR UNKNOWN INDICATION
     Dosage: CONTINUOUS
     Route: 015

REACTIONS (4)
  - ADVERSE EVENT [None]
  - APGAR SCORE LOW [None]
  - PREMATURE BABY [None]
  - SMALL FOR DATES BABY [None]
